FAERS Safety Report 5307096-3 (Version None)
Quarter: 2007Q2

REPORT INFORMATION
  Report Type: 
  Country: None (occurrence: None)
  Receive Date: 20070425
  Receipt Date: 20070420
  Transmission Date: 20071010
  Serious: Yes (Hospitalization)
  Sender: FDA-Public Use
  Company Number: HQWYE731420APR07

PATIENT
  Age: 55 Year
  Sex: Male

DRUGS (10)
  1. CORDARONE [Suspect]
     Indication: ATRIAL FLUTTER
     Dosage: 200 MG, FREQUENCY UNSPECIFIED
     Route: 048
  2. INDAPAMIDE [Concomitant]
     Dosage: DOSE UNKNOWN
     Route: 048
  3. CORVASAL [Concomitant]
     Dosage: DOSE UNKNOWN
     Route: 065
  4. KARDEGIC [Concomitant]
     Dosage: DOSE UNKNOWN
     Route: 048
  5. ATACAND [Concomitant]
     Dosage: DOSE UNKNOWN
     Route: 048
  6. ELISOR [Concomitant]
     Dosage: DOSE UNKNOWN
     Route: 048
  7. AMLOR [Concomitant]
     Dosage: DOSE UNKNOWN
     Route: 048
  8. KALEORID [Concomitant]
     Dosage: DOSE UNKNOWN
     Route: 048
  9. DIAMICRON [Concomitant]
     Indication: DIABETES MELLITUS NON-INSULIN-DEPENDENT
     Dosage: DOSE UNKNOWN
     Route: 048
  10. VASTAREL [Concomitant]
     Dosage: DOSE UNKNOWN
     Route: 048

REACTIONS (3)
  - GOITRE [None]
  - HYPERTHYROIDISM [None]
  - PAIN [None]
